FAERS Safety Report 10245076 (Version 1)
Quarter: 2014Q2

REPORT INFORMATION
  Report Type: Spontaneous
  Country: US (occurrence: US)
  Receive Date: 20140618
  Receipt Date: 20140618
  Transmission Date: 20141212
  Serious: No
  Sender: FDA-Public Use
  Company Number: US-GALDERMA-US14001104

PATIENT
  Age: 41 Year
  Sex: Male
  Weight: 78.09 kg

DRUGS (5)
  1. MIRVASO (BRIMONIDINE) TOPICAL GEL, 0.33% [Suspect]
     Indication: ROSACEA
     Dosage: 0.33%
     Route: 061
     Dates: start: 20140304
  2. ELIDEL [Concomitant]
     Indication: INFLAMMATION
     Route: 061
     Dates: start: 20110803
  3. EUCERIN ANTI-INFLAMMATORY FACE WASH [Concomitant]
     Indication: THERAPEUTIC SKIN CARE TOPICAL
     Route: 061
     Dates: start: 2010
  4. NEOCUTIS MOISTURIZER [Concomitant]
     Indication: DRY SKIN PROPHYLAXIS
     Route: 061
  5. RETIN-A [Concomitant]
     Dosage: 0.04%
     Route: 061
     Dates: start: 20131001

REACTIONS (3)
  - Rebound effect [Recovered/Resolved]
  - Erythema [Recovered/Resolved]
  - Inappropriate schedule of drug administration [Recovered/Resolved]
